FAERS Safety Report 7434869-3 (Version None)
Quarter: 2011Q2

REPORT INFORMATION
  Report Type: 
  Country: None (occurrence: None)
  Receive Date: 20110415
  Receipt Date: 20110406
  Transmission Date: 20111010
  Serious: Yes (Hospitalization, Other)
  Sender: FDA-Public Use
  Company Number: CL-280(1)-2011

PATIENT
  Age: 4 Year
  Sex: Male
  Weight: 15 kg

DRUGS (1)
  1. ONDANSETRON [Suspect]
     Indication: VOMITING
     Dosage: 2MG ONCE INTRAVENOUS 2MG ONCE INTRAVENOUS, ( ONE DOSE)
     Route: 042

REACTIONS (6)
  - DYSTONIA [None]
  - HYPOGLYCAEMIA [None]
  - BRUXISM [None]
  - HYPERTONIA [None]
  - GRAND MAL CONVULSION [None]
  - EXTENSOR PLANTAR RESPONSE [None]
